FAERS Safety Report 4298431-6 (Version None)
Quarter: 2004Q1

REPORT INFORMATION
  Report Type: 
  Country: None (occurrence: None)
  Receive Date: 20040218
  Receipt Date: 20030722
  Transmission Date: 20041129
  Serious: Yes (Hospitalization, Other)
  Sender: FDA-Public Use
  Company Number: US-BRISTOL-MYERS SQUIBB COMPANY-12333720

PATIENT
  Age: 47 Year
  Sex: Female

DRUGS (1)
  1. STADOL [Suspect]
     Indication: MIGRAINE
     Route: 045
     Dates: start: 19950101

REACTIONS (4)
  - DEPENDENCE [None]
  - DRUG ADDICT [None]
  - MAJOR DEPRESSION [None]
  - SUICIDAL IDEATION [None]
